FAERS Safety Report 8258240-X (Version None)
Quarter: 2012Q2

REPORT INFORMATION
  Report Type: 
  Country: None (occurrence: None)
  Receive Date: 20120404
  Receipt Date: 20120402
  Transmission Date: 20120825
  Serious: Yes (Hospitalization, Other)
  Sender: FDA-Public Use
  Company Number: PHHY2012DE019806

PATIENT

DRUGS (1)
  1. TERBINAFINE HCL [Suspect]
     Indication: ONYCHOMYCOSIS
     Dosage: 250 MG, BID
     Route: 048

REACTIONS (4)
  - BUDD-CHIARI SYNDROME [None]
  - BLOOD ALKALINE PHOSPHATASE INCREASED [None]
  - HEPATIC CIRRHOSIS [None]
  - GAMMA-GLUTAMYLTRANSFERASE INCREASED [None]
